FAERS Safety Report 7548412-1 (Version None)
Quarter: 2011Q2

REPORT INFORMATION
  Report Type: 
  Country: None (occurrence: None)
  Receive Date: 20110615
  Receipt Date: 20110606
  Transmission Date: 20111010
  Serious: Yes (Hospitalization)
  Sender: FDA-Public Use
  Company Number: JP-JNJFOC-20100104024

PATIENT
  Sex: Female
  Weight: 55 kg

DRUGS (46)
  1. DOXORUBICIN HCL [Suspect]
     Dosage: CYCLE 6
     Route: 042
     Dates: start: 20091028, end: 20091028
  2. CONCENTRATED HUMAN RED BLOOD CELLS [Concomitant]
     Route: 042
     Dates: start: 20091210, end: 20091210
  3. ACETAMINOPHEN [Concomitant]
     Route: 048
     Dates: start: 20091209, end: 20100805
  4. POLAPREZINC [Concomitant]
     Indication: PROPHYLAXIS
     Route: 048
     Dates: start: 20101022
  5. METHYCOBAL [Concomitant]
     Indication: PROPHYLAXIS
     Route: 048
  6. ACETAMINOPHEN [Concomitant]
     Route: 048
     Dates: start: 20091201, end: 20091208
  7. OXYCONTIN [Concomitant]
     Route: 048
     Dates: start: 20110516
  8. OXYCONTIN [Concomitant]
     Route: 048
     Dates: start: 20110105, end: 20110515
  9. DOXORUBICIN HCL [Suspect]
     Dosage: CYCLE 3
     Route: 042
     Dates: start: 20090714, end: 20090714
  10. DOXORUBICIN HCL [Suspect]
     Dosage: CYCLE 1
     Route: 042
     Dates: start: 20090512, end: 20090512
  11. DOXORUBICIN HCL [Suspect]
     Dosage: CYCLE 14
     Route: 042
     Dates: start: 20101111, end: 20101111
  12. LOXONIN [Concomitant]
     Route: 048
     Dates: end: 20091201
  13. OXYCONTIN [Concomitant]
     Route: 048
     Dates: start: 20101006, end: 20101014
  14. CONCENTRATED HUMAN RED BLOOD CELLS [Concomitant]
     Indication: ANAEMIA
     Route: 042
     Dates: start: 20090806, end: 20090806
  15. ACETAMINOPHEN [Concomitant]
     Route: 048
     Dates: start: 20100806
  16. PROCHLORPERAZINE [Concomitant]
     Indication: PROPHYLAXIS
     Route: 048
     Dates: start: 20101006
  17. DOXORUBICIN HCL [Suspect]
     Dosage: CYCLE 8
     Route: 042
     Dates: start: 20100106, end: 20100106
  18. DOXORUBICIN HCL [Suspect]
     Dosage: CYCLE 12
     Route: 042
     Dates: start: 20100521, end: 20100521
  19. LANSOPRAZOLE [Concomitant]
     Indication: PROPHYLAXIS
     Route: 048
     Dates: start: 20091026
  20. RAMELTEON [Concomitant]
     Indication: PROPHYLAXIS
     Route: 048
     Dates: start: 20101014, end: 20101213
  21. CONCENTRATED HUMAN RED BLOOD CELLS [Concomitant]
     Route: 042
     Dates: start: 20110426, end: 20110426
  22. OXYCONTIN [Concomitant]
     Route: 048
     Dates: start: 20101015, end: 20101221
  23. DOXORUBICIN HCL [Suspect]
     Indication: OVARIAN CANCER RECURRENT
     Dosage: CYCLE 9
     Route: 042
     Dates: start: 20100208, end: 20100208
  24. DOXORUBICIN HCL [Suspect]
     Dosage: CYCLE 10
     Route: 042
     Dates: start: 20100317, end: 20100317
  25. KENALOG [Concomitant]
     Indication: STOMATITIS
     Route: 049
     Dates: start: 20090706
  26. CONCENTRATED HUMAN RED BLOOD CELLS [Concomitant]
     Route: 042
     Dates: start: 20091002, end: 20091002
  27. INFLUENZA HA VACCINE [Concomitant]
     Indication: PROPHYLAXIS
     Route: 058
     Dates: start: 20091208, end: 20091208
  28. OXYCONTIN [Concomitant]
     Route: 048
     Dates: start: 20101222, end: 20110104
  29. DOXORUBICIN HCL [Suspect]
     Dosage: CYCLE 7
     Route: 042
     Dates: start: 20091202, end: 20091202
  30. DOXORUBICIN HCL [Suspect]
     Dosage: CYCLE 11
     Route: 042
     Dates: start: 20100415, end: 20100415
  31. DOXORUBICIN HCL [Suspect]
     Dosage: CYCLE 4
     Route: 042
     Dates: start: 20090825, end: 20090825
  32. DOXORUBICIN HCL [Suspect]
     Dosage: CYCLE 2
     Route: 042
     Dates: start: 20090616, end: 20090616
  33. DOXORUBICIN HCL [Suspect]
     Dosage: CYCLE 13
     Route: 042
     Dates: start: 20101014, end: 20101021
  34. RAMELTEON [Concomitant]
     Route: 048
     Dates: start: 20090512, end: 20100526
  35. HACHIAZULE [Concomitant]
     Route: 049
     Dates: start: 20101014, end: 20101223
  36. OXINORM [Concomitant]
     Route: 048
     Dates: start: 20101006
  37. TS-1 [Concomitant]
     Route: 048
     Dates: start: 20110105
  38. DOXORUBICIN HCL [Suspect]
     Dosage: CYCLE 5
     Route: 042
     Dates: start: 20090929, end: 20090929
  39. DOXORUBICIN HCL [Suspect]
     Dosage: CYCLE 15
     Route: 042
     Dates: start: 20101209, end: 20101209
  40. MUCOSTA [Concomitant]
     Indication: PROPHYLAXIS
     Route: 048
     Dates: end: 20101021
  41. PYDOXAL [Concomitant]
     Indication: PROPHYLAXIS
     Route: 048
     Dates: start: 20090512
  42. BIOFERMIN [Concomitant]
     Indication: PROPHYLAXIS
     Route: 048
  43. HACHIAZULE [Concomitant]
     Indication: PROPHYLAXIS
     Route: 049
     Dates: start: 20090512, end: 20100609
  44. RINDERON-VG [Concomitant]
     Indication: INJECTION SITE HAEMATOMA
     Route: 061
     Dates: start: 20090715, end: 20090724
  45. CONCENTRATED HUMAN RED BLOOD CELLS [Concomitant]
     Route: 042
     Dates: start: 20110307, end: 20110307
  46. CONCENTRATED HUMAN RED BLOOD CELLS [Concomitant]
     Route: 042
     Dates: start: 20110516, end: 20110516

REACTIONS (2)
  - ANAEMIA [None]
  - MALAISE [None]
